FAERS Safety Report 4976202-2 (Version None)
Quarter: 2006Q2

REPORT INFORMATION
  Report Type: 
  Country: None (occurrence: None)
  Receive Date: 20060419
  Receipt Date: 20060131
  Transmission Date: 20061013
  Serious: Yes (Death, Hospitalization)
  Sender: FDA-Public Use
  Company Number: PHEH2006US01503

PATIENT
  Age: 61 Year
  Sex: Male
  Weight: 102 kg

DRUGS (7)
  1. NEULASTA [Concomitant]
     Route: 058
     Dates: start: 20060124
  2. NEURONTIN [Concomitant]
     Dosage: 300 MG, TID
     Route: 048
  3. ALLOPURINOL [Concomitant]
  4. AMBIEN [Concomitant]
  5. AVINZA [Concomitant]
  6. EXJADE [Suspect]
     Indication: BLOOD IRON INCREASED
     Dosage: 125 MG QID
     Route: 048
     Dates: start: 20060109, end: 20060125
  7. CHEMOTHERAPEUTICS,OTHER [Suspect]

REACTIONS (5)
  - DISORIENTATION [None]
  - ENCEPHALOPATHY [None]
  - HEPATIC FAILURE [None]
  - MALAISE [None]
  - PANCYTOPENIA [None]
